FAERS Safety Report 4665337-X (Version None)
Quarter: 2005Q2

REPORT INFORMATION
  Report Type: 
  Country: None (occurrence: None)
  Receive Date: 20050517
  Receipt Date: 20050209
  Transmission Date: 20051028
  Serious: No
  Sender: FDA-Public Use
  Company Number: S05-USA-00754-01

PATIENT
  Age: 21 Year
  Sex: Female

DRUGS (10)
  1. NAMENDA [Suspect]
     Indication: AMNESIA
     Dosage: 10 MG BID PO
     Route: 048
     Dates: start: 20041027, end: 20050109
  2. NAMENDA [Suspect]
     Indication: CONCUSSION
     Dosage: 10 MG BID PO
     Route: 048
     Dates: start: 20041027, end: 20050109
  3. NAMENDA [Suspect]
     Indication: AMNESIA
     Dosage: 5 MG QD PO
     Route: 048
     Dates: start: 20041006, end: 20041012
  4. NAMENDA [Suspect]
     Indication: CONCUSSION
     Dosage: 5 MG QD PO
     Route: 048
     Dates: start: 20041006, end: 20041012
  5. NAMENDA [Suspect]
     Indication: AMNESIA
     Dosage: 5 MG BID PO
     Route: 048
     Dates: start: 20041013, end: 20041019
  6. NAMENDA [Suspect]
     Indication: CONCUSSION
     Dosage: 5 MG BID PO
     Route: 048
     Dates: start: 20041013, end: 20041019
  7. NAMENDA [Suspect]
     Indication: AMNESIA
     Dosage: 15 MG QD PO
     Route: 048
     Dates: start: 20041020, end: 20041026
  8. NAMENDA [Suspect]
     Indication: CONCUSSION
     Dosage: 15 MG QD PO
     Route: 048
     Dates: start: 20041020, end: 20041026
  9. ORTHO TRI-CYCLEN [Suspect]
     Indication: CONTRACEPTION
     Dates: end: 20050109
  10. ULTRAM [Concomitant]

REACTIONS (2)
  - DRUG INTERACTION [None]
  - PREGNANCY [None]
